FAERS Safety Report 12101473 (Version 4)
Quarter: 2016Q2

REPORT INFORMATION
  Report Type: Report from Study
  Country: PT (occurrence: PT)
  Receive Date: 20160222
  Receipt Date: 20160413
  Transmission Date: 20160815
  Serious: Yes (Other)
  Sender: FDA-Public Use
  Company Number: PT-ABBVIE-16P-130-1560301-00

PATIENT

DRUGS (3)
  1. HUMIRA [Suspect]
     Active Substance: ADALIMUMAB
     Indication: ANKYLOSING SPONDYLITIS
     Route: 058
     Dates: start: 20160204, end: 20160204
  2. HUMIRA [Suspect]
     Active Substance: ADALIMUMAB
     Route: 058
     Dates: start: 20160222, end: 20160222
  3. HUMIRA [Suspect]
     Active Substance: ADALIMUMAB
     Route: 058
     Dates: start: 20160224, end: 20160404

REACTIONS (21)
  - Muscular weakness [Not Recovered/Not Resolved]
  - Mobility decreased [Not Recovered/Not Resolved]
  - Hyperhidrosis [Not Recovered/Not Resolved]
  - Decreased appetite [Not Recovered/Not Resolved]
  - Asthenia [Not Recovered/Not Resolved]
  - Nervousness [Not Recovered/Not Resolved]
  - Depression [Not Recovered/Not Resolved]
  - Neck pain [Not Recovered/Not Resolved]
  - Memory impairment [Recovered/Resolved]
  - Sexual dysfunction [Not Recovered/Not Resolved]
  - Wrong technique in product usage process [Unknown]
  - Disorientation [Recovered/Resolved]
  - Somnolence [Not Recovered/Not Resolved]
  - Drug effect decreased [Unknown]
  - Fatigue [Not Recovered/Not Resolved]
  - Vision blurred [Recovered/Resolved]
  - Feeling of despair [Not Recovered/Not Resolved]
  - Dyspnoea [Not Recovered/Not Resolved]
  - Posture abnormal [Not Recovered/Not Resolved]
  - Syncope [Recovered/Resolved]
  - Abdominal pain [Recovered/Resolved]

NARRATIVE: CASE EVENT DATE: 201602
